FAERS Safety Report 8767850 (Version 4)
Quarter: 2013Q3

REPORT INFORMATION
  Report Type: Spontaneous
  Country: JP (occurrence: JP)
  Receive Date: 20120905
  Receipt Date: 20130701
  Transmission Date: 20140515
  Serious: Yes (Other)
  Sender: FDA-Public Use
  Company Number: PHHY2012JP074920

PATIENT
  Age: 42 Year
  Sex: Female

DRUGS (7)
  1. RIFAMPICIN SANDOZ [Suspect]
     Indication: TUBERCULOUS PLEURISY
     Dosage: 450 MG, QD
     Route: 048
     Dates: start: 20110618, end: 20110705
  2. RIFAMPICIN SANDOZ [Suspect]
     Dosage: 450 MG, QD
     Route: 048
     Dates: start: 20110809, end: 20110810
  3. ESANBUTOL [Suspect]
     Indication: TUBERCULOUS PLEURISY
     Dosage: 750 MG, QD
     Route: 048
     Dates: start: 20110618
  4. LEVOFLOXACIN [Suspect]
     Indication: TUBERCULOUS PLEURISY
  5. ISCOTIN [Suspect]
     Indication: TUBERCULOUS PLEURISY
     Dosage: 250 MG, QD
     Route: 048
     Dates: start: 20110618
  6. PYRAMIDE [Suspect]
     Indication: TUBERCULOUS PLEURISY
     Dosage: 1 G, QD
     Route: 048
     Dates: start: 20110618
  7. PYRIDOXAL PHOSPHATE [Suspect]
     Dosage: 10 MG, TID
     Route: 048
     Dates: start: 20110618

REACTIONS (8)
  - Pleurocutaneous fistula [Unknown]
  - Chest pain [Unknown]
  - Swelling [Unknown]
  - Tuberculosis [Unknown]
  - Lip swelling [Recovered/Resolved]
  - Hepatic function abnormal [Recovered/Resolved]
  - Pyrexia [Recovered/Resolved]
  - Vomiting [Recovered/Resolved]
